FAERS Safety Report 18279325 (Version 1)
Quarter: 2020Q3

REPORT INFORMATION
  Report Type: Other
  Country: DK (occurrence: DK)
  Receive Date: 20200917
  Receipt Date: 20200917
  Transmission Date: 20201103
  Serious: Yes (Hospitalization, Disabling, Other)
  Sender: FDA-Public Use
  Company Number: DK-DENTSPLY-2020SCDP000280

PATIENT
  Age: 54 Year
  Sex: Female

DRUGS (2)
  1. XYLOCAINE [Suspect]
     Active Substance: LIDOCAINE HYDROCHLORIDE
     Indication: LOCAL ANAESTHESIA
     Dosage: 1 DOSAGE FORM, XYLOCAIN UKONSERVERET / XYLOCAIN UNCONSERVED, STRENGTH 2%
     Route: 003
     Dates: start: 20171228, end: 20171228
  2. MAREVAN [Concomitant]
     Active Substance: WARFARIN SODIUM
     Indication: THROMBOSIS PROPHYLAXIS
     Dosage: 2.5 MILLIGRAM (STRENGTH: 2.5 MG, DOSAGE: UNKNOWN, AFTER INSTRUCTION
     Route: 048
     Dates: start: 20141208

REACTIONS (3)
  - Cerebrovascular accident [Recovered/Resolved]
  - Angioedema [Recovered/Resolved]
  - Hypersensitivity [Recovered/Resolved]

NARRATIVE: CASE EVENT DATE: 20171228
